FAERS Safety Report 9518153 (Version 1)
Quarter: 2013Q3

REPORT INFORMATION
  Report Type: Spontaneous
  Country: US (occurrence: None)
  Receive Date: 20130910
  Receipt Date: 20130910
  Transmission Date: 20140515
  Serious: Yes (Other)
  Sender: FDA-Public Use
  Company Number: None

PATIENT
  Age: 60 Year
  Sex: Female
  Weight: 54.43 kg

DRUGS (7)
  1. EXEMESTANE [Suspect]
     Route: 048
     Dates: start: 20130802, end: 20130909
  2. ANASTROZOLE [Concomitant]
  3. AMITRIPTYLINE [Concomitant]
  4. METFORMIN [Concomitant]
  5. SIMVASTATIN [Concomitant]
  6. PROAIR HFA [Concomitant]
  7. OXYCODONE / ACETAMINOPHEN [Concomitant]

REACTIONS (3)
  - Bone pain [None]
  - Abdominal pain upper [None]
  - Arthralgia [None]
